FAERS Safety Report 6181215-1 (Version None)
Quarter: 2009Q2

REPORT INFORMATION
  Report Type: 
  Country: None (occurrence: None)
  Receive Date: 20090506
  Receipt Date: 20090422
  Transmission Date: 20091009
  Serious: Yes (Hospitalization)
  Sender: FDA-Public Use
  Company Number: FR-GENENTECH-269236

PATIENT
  Sex: Male

DRUGS (5)
  1. RITUXIMAB [Suspect]
     Indication: B-CELL LYMPHOMA
     Dosage: 845 MG, UNK
     Route: 042
     Dates: start: 20080501, end: 20080618
  2. CISPLATIN [Suspect]
     Indication: LYMPHOMA
     Dosage: 217 MG, UNK
     Route: 042
     Dates: start: 20080501, end: 20080618
  3. CYTARABINE [Suspect]
     Indication: LYMPHOMA
     Dosage: 8.7 G, UNK
     Route: 042
     Dates: start: 20080501, end: 20080618
  4. CYTARABINE [Suspect]
     Dosage: 4347 MG, UNK
     Route: 042
     Dates: start: 20080617
  5. DEXAMETHASONE 4MG TAB [Suspect]
     Indication: LYMPHOMA
     Dosage: 160 MG, UNK
     Route: 042
     Dates: start: 20080501, end: 20080621

REACTIONS (3)
  - BLINDNESS [None]
  - ENCEPHALOPATHY [None]
  - OPTIC NEUROPATHY [None]
